FAERS Safety Report 4512212-7 (Version None)
Quarter: 2004Q4

REPORT INFORMATION
  Report Type: 
  Country: None (occurrence: None)
  Receive Date: 20041123
  Receipt Date: 20041112
  Transmission Date: 20050328
  Serious: Yes (Hospitalization, Other)
  Sender: FDA-Public Use
  Company Number: 2004025791

PATIENT
  Age: 34 Year
  Sex: Male

DRUGS (3)
  1. LIPITOR [Suspect]
     Indication: HYPERLIPIDAEMIA
     Dosage: 5 MG ( 1 IN 1 D), ORAL
     Route: 048
     Dates: start: 20011215, end: 20040405
  2. ALLOPURINOL [Suspect]
     Indication: HYPERURICAEMIA
     Dosage: 200 MG (1 IN 1 D), ORAL
     Route: 048
     Dates: start: 20020110, end: 20040405
  3. LANSOPRAZOLE [Concomitant]

REACTIONS (14)
  - ABDOMINAL PAIN [None]
  - ASTHENIA [None]
  - BLOOD CHOLESTEROL INCREASED [None]
  - EROSIVE DUODENITIS [None]
  - HIATUS HERNIA [None]
  - HYPERURICAEMIA [None]
  - INFLUENZA [None]
  - MYALGIA [None]
  - NASOPHARYNGITIS [None]
  - PAIN IN EXTREMITY [None]
  - REFLUX OESOPHAGITIS [None]
  - RHABDOMYOLYSIS [None]
  - VOMITING [None]
  - WEIGHT DECREASED [None]
